FAERS Safety Report 6294829-5 (Version None)
Quarter: 2009Q3

REPORT INFORMATION
  Report Type: 
  Country: None (occurrence: None)
  Receive Date: 20090803
  Receipt Date: 20090722
  Transmission Date: 20100115
  Serious: Yes (Other)
  Sender: FDA-Public Use
  Company Number: PHHY2009CA18320

PATIENT
  Sex: Female
  Weight: 70.6 kg

DRUGS (9)
  1. EXJADE [Suspect]
     Indication: MYELODYSPLASTIC SYNDROME
     Dosage: 1500 MG, QD
     Route: 048
     Dates: start: 20090301, end: 20090501
  2. EXJADE [Suspect]
     Indication: IRON OVERLOAD
  3. LENALIDOMIDE [Concomitant]
  4. AMOXICILLIN [Concomitant]
  5. LAMOTRIGINE [Concomitant]
     Dosage: 200 MG, QHS
  6. EPREX [Concomitant]
  7. VALIUM [Concomitant]
     Dosage: 5 MG, BID
  8. PAXIL [Concomitant]
     Dosage: 15 MG, QD
  9. ZYPREXA [Concomitant]
     Dosage: 1.85 MG, QD

REACTIONS (6)
  - CHEST PAIN [None]
  - DEPRESSION [None]
  - DYSPEPSIA [None]
  - HEADACHE [None]
  - INSOMNIA [None]
  - NIGHT SWEATS [None]
